FAERS Safety Report 20028513 (Version 1)
Quarter: 2021Q4

REPORT INFORMATION
  Report Type: Spontaneous
  Country: IE (occurrence: IE)
  Receive Date: 20211103
  Receipt Date: 20211103
  Transmission Date: 20220303
  Serious: Yes (Hospitalization, Disabling, Congenital Anomaly, Other)
  Sender: FDA-Public Use
  Company Number: IE-ABBVIE-21K-229-4145715-00

PATIENT
  Sex: Male

DRUGS (4)
  1. VALPROATE SODIUM [Suspect]
     Active Substance: VALPROATE SODIUM
     Indication: Product used for unknown indication
     Route: 065
  2. RISPERIDONE [Concomitant]
     Active Substance: RISPERIDONE
     Indication: Product used for unknown indication
  3. ARIPIPRAZOLE [Concomitant]
     Active Substance: ARIPIPRAZOLE
     Indication: Product used for unknown indication
  4. PROMETHAZINE [Concomitant]
     Active Substance: PROMETHAZINE HYDROCHLORIDE
     Indication: Product used for unknown indication

REACTIONS (27)
  - Schizoaffective disorder [Unknown]
  - Hallucinations, mixed [Unknown]
  - Disability [Unknown]
  - Autism spectrum disorder [Unknown]
  - Sleep disorder [Unknown]
  - Withdrawal syndrome [Unknown]
  - Emotional distress [Unknown]
  - Tearfulness [Unknown]
  - Disinhibition [Unknown]
  - Clumsiness [Unknown]
  - Restlessness [Unknown]
  - Social problem [Unknown]
  - Paranoia [Unknown]
  - Hypophagia [Unknown]
  - Persecutory delusion [Unknown]
  - Abnormal behaviour [Unknown]
  - Memory impairment [Unknown]
  - Balance disorder [Unknown]
  - Psychotic disorder [Unknown]
  - Agitation [Unknown]
  - Aggression [Unknown]
  - Weight decreased [Unknown]
  - Confusional state [Unknown]
  - Unevaluable event [Unknown]
  - Depression [Unknown]
  - Disturbance in attention [Unknown]
  - Learning disorder [Unknown]
